FAERS Safety Report 8601258 (Version 2)
Quarter: 2013Q2

REPORT INFORMATION
  Report Type: Report from Study
  Country: US (occurrence: US)
  Receive Date: 20120606
  Receipt Date: 20130618
  Transmission Date: 20140414
  Serious: Yes (Death, Life-Threatening, Other)
  Sender: FDA-Public Use
  Company Number: US-ROCHE-1074754

PATIENT
  Age: 65 Year
  Sex: Female
  Weight: 150.55 kg

DRUGS (4)
  1. BEVACIZUMAB [Suspect]
     Indication: METASTATIC MALIGNANT MELANOMA
     Dosage: LAST DOSE TAKEN 18/MAY/2012
     Route: 042
     Dates: start: 20120518
  2. PACLITAXEL [Suspect]
     Indication: METASTATIC MALIGNANT MELANOMA
     Dosage: LAST DOSE TAKEN ON 18/MAY/2012
     Route: 042
     Dates: start: 20120518
  3. CARBOPLATIN [Suspect]
     Indication: METASTATIC MALIGNANT MELANOMA
     Dosage: 5 AUC
     Route: 042
     Dates: start: 20120518
  4. EVEROLIMUS [Suspect]
     Indication: METASTATIC MALIGNANT MELANOMA
     Route: 065
     Dates: start: 20120518

REACTIONS (5)
  - Sepsis [Fatal]
  - Platelet count decreased [Unknown]
  - Neutrophil count decreased [Unknown]
  - Diarrhoea [Unknown]
  - Renal failure acute [Unknown]
